FAERS Safety Report 4608215-4 (Version None)
Quarter: 2005Q1

REPORT INFORMATION
  Report Type: 
  Country: None (occurrence: None)
  Receive Date: 20050311
  Receipt Date: 20050302
  Transmission Date: 20050727
  Serious: Yes (Hospitalization)
  Sender: FDA-Public Use
  Company Number: 2005PK00386

PATIENT
  Age: 60 Year
  Sex: Female

DRUGS (6)
  1. SEROQUEL [Suspect]
     Dosage: 25 MG DAILY PO
     Route: 048
     Dates: start: 20000313, end: 20000314
  2. SEROQUEL [Suspect]
     Dosage: 25 MG DAILY PO
     Route: 048
     Dates: start: 20000315
  3. TAXILAN [Suspect]
     Dosage: 50 MG DAILY
     Dates: start: 20000223, end: 20000314
  4. AKINETON [Suspect]
     Dosage: 4 MG DAILY PO
     Route: 048
     Dates: start: 20000120, end: 20000314
  5. TRANXENE [Concomitant]
  6. TAVOR [Concomitant]

REACTIONS (6)
  - DELIRIUM [None]
  - DISORIENTATION [None]
  - DRUG INTERACTION [None]
  - FEELING ABNORMAL [None]
  - RESTLESSNESS [None]
  - SENSATION OF PRESSURE [None]
